FAERS Safety Report 10338294 (Version 4)
Quarter: 2015Q2

REPORT INFORMATION
  Report Type: Report from Study
  Country: GR (occurrence: GR)
  Receive Date: 20140724
  Receipt Date: 20150410
  Transmission Date: 20150821
  Serious: Yes (Other)
  Sender: FDA-Public Use
  Company Number: GR-AMGEN-GRCNI2014054446

PATIENT
  Age: 81 Year
  Sex: Male

DRUGS (3)
  1. AMOXIL                             /00249601/ [Concomitant]
     Active Substance: AMOXICILLIN
     Dosage: UNK
     Dates: start: 20140403, end: 20140415
  2. XGEVA [Suspect]
     Active Substance: DENOSUMAB
     Indication: METASTASES TO BONE
     Dosage: UNK UNK, Q4WK
     Route: 058
     Dates: start: 201311
  3. DENOSUMAB [Suspect]
     Active Substance: DENOSUMAB
     Indication: PRODUCT USED FOR UNKNOWN INDICATION
     Dosage: UNK
     Route: 065

REACTIONS (1)
  - Osteonecrosis of jaw [Recovering/Resolving]

NARRATIVE: CASE EVENT DATE: 20140611
